FAERS Safety Report 11890195 (Version 2)
Quarter: 2016Q1

REPORT INFORMATION
  Report Type: Report from Study
  Country: US (occurrence: US)
  Receive Date: 20160105
  Receipt Date: 20160114
  Transmission Date: 20160526
  Serious: Yes (Hospitalization)
  Sender: FDA-Public Use
  Company Number: US-EISAI MEDICAL RESEARCH-EC-2015-007673

PATIENT
  Age: 60 Year
  Sex: Female
  Weight: 46.7 kg

DRUGS (9)
  1. VITAMIN D [Concomitant]
     Active Substance: CHOLECALCIFEROL
  2. LENVIMA [Suspect]
     Active Substance: LENVATINIB
     Route: 048
     Dates: start: 20150912, end: 20151028
  3. HYDROCODONE-ACETAMINOP [Concomitant]
  4. MULTIVITAMINS [Concomitant]
     Active Substance: VITAMINS
  5. LIDOCAINE 5% [Concomitant]
     Active Substance: LIDOCAINE
  6. LENVIMA [Suspect]
     Active Substance: LENVATINIB
     Indication: THYROID CANCER
     Route: 048
     Dates: start: 20150602, end: 20150904
  7. LEVOTHYROXINE SODIUM. [Concomitant]
     Active Substance: LEVOTHYROXINE SODIUM
  8. CALCIUM [Concomitant]
     Active Substance: CALCIUM
  9. LENVIMA [Suspect]
     Active Substance: LENVATINIB
     Route: 048
     Dates: start: 20151029, end: 20151208

REACTIONS (11)
  - Malignant neoplasm progression [Unknown]
  - Dry mouth [Unknown]
  - Headache [Unknown]
  - Posterior reversible encephalopathy syndrome [Recovering/Resolving]
  - Skin exfoliation [Recovered/Resolved]
  - Gallbladder pain [Unknown]
  - Blood pressure increased [Recovered/Resolved]
  - Decreased appetite [Unknown]
  - Burning sensation [Recovered/Resolved]
  - Fatigue [Unknown]
  - Neutropenia [Not Recovered/Not Resolved]

NARRATIVE: CASE EVENT DATE: 2015
